FAERS Safety Report 8011159-1 (Version None)
Quarter: 2011Q4

REPORT INFORMATION
  Report Type: 
  Country: None (occurrence: None)
  Receive Date: 20111228
  Receipt Date: 20111220
  Transmission Date: 20120403
  Serious: Yes (Hospitalization)
  Sender: FDA-Public Use
  Company Number: JP-CEPHALON-2011006351

PATIENT
  Age: 77 Year
  Sex: Male

DRUGS (2)
  1. BENDAMUSTINE HCL [Suspect]
     Indication: MANTLE CELL LYMPHOMA
     Route: 042
     Dates: start: 20111006, end: 20111007
  2. BENDAMUSTINE HCL [Suspect]
     Route: 042
     Dates: start: 20111212, end: 20111213

REACTIONS (1)
  - ILEUS [None]
